FAERS Safety Report 13695678 (Version 1)
Quarter: 2017Q2

REPORT INFORMATION
  Report Type: Report from Study
  Country: IT (occurrence: IT)
  Receive Date: 20170627
  Receipt Date: 20170627
  Transmission Date: 20170830
  Serious: Yes (Other)
  Sender: FDA-Public Use
  Company Number: IT-MYLANLABS-2017M1037362

PATIENT

DRUGS (2)
  1. NIMESULIDE [Interacting]
     Active Substance: NIMESULIDE
     Indication: ARTHRALGIA
     Dosage: 200MG
     Route: 048
  2. DICLOFENAC [Suspect]
     Active Substance: DICLOFENAC
     Indication: ARTHRALGIA
     Dosage: 75MG
     Route: 030

REACTIONS (3)
  - Incorrect drug administration duration [Unknown]
  - Drug interaction [Unknown]
  - Gastritis erosive [Unknown]
